FAERS Safety Report 17048554 (Version 1)
Quarter: 2019Q4

REPORT INFORMATION
  Report Type: Spontaneous
  Country: ES (occurrence: ES)
  Receive Date: 20191119
  Receipt Date: 20191119
  Transmission Date: 20200122
  Serious: Yes (Hospitalization)
  Sender: FDA-Public Use
  Company Number: ES-MYLANLABS-2019M1109502

PATIENT
  Age: 12 Year
  Sex: Female

DRUGS (4)
  1. METRONIDAZOL                       /00012501/ [Suspect]
     Active Substance: METRONIDAZOLE
     Indication: SUBDURAL ABSCESS
     Dosage: 500 MILLIGRAM, Q8H
     Route: 048
     Dates: start: 20190213, end: 20190508
  2. ACETAZOLAMIDA [Concomitant]
     Active Substance: ACETAZOLAMIDE
     Indication: SUBDURAL ABSCESS
     Dosage: 250 MILLIGRAM, Q6H
     Route: 048
     Dates: start: 20170215
  3. OMEPRAZOLE. [Suspect]
     Active Substance: OMEPRAZOLE
     Indication: PROPHYLAXIS
     Dosage: 20 MILLIGRAM, QD
     Route: 048
     Dates: start: 20190131
  4. LACOSAMIDA [Suspect]
     Active Substance: LACOSAMIDE
     Indication: SUBDURAL ABSCESS
     Dosage: 50 MILLIGRAM, BID
     Route: 048
     Dates: start: 20190213

REACTIONS (2)
  - Dysaesthesia [Unknown]
  - Vomiting [Recovered/Resolved]

NARRATIVE: CASE EVENT DATE: 20190506
